FAERS Safety Report 16918090 (Version 2)
Quarter: 2019Q4

REPORT INFORMATION
  Report Type: Report from Study
  Country: None (occurrence: CA)
  Receive Date: 20191015
  Receipt Date: 20191030
  Transmission Date: 20200122
  Serious: Yes (Other)
  Sender: FDA-Public Use
  Company Number: CA-ABBVIE-19K-028-2919982-00

PATIENT
  Sex: Male
  Weight: 77 kg

DRUGS (2)
  1. HUMIRA [Suspect]
     Active Substance: ADALIMUMAB
     Indication: CROHN^S DISEASE
     Route: 058
     Dates: start: 20150922
  2. METAMUCIL [Suspect]
     Active Substance: PLANTAGO SEED
     Indication: CONSTIPATION
     Dosage: 3 PILLS
     Route: 048
     Dates: start: 2019, end: 2019

REACTIONS (5)
  - Constipation [Recovered/Resolved]
  - Muscle spasms [Recovered/Resolved]
  - Vomiting projectile [Recovered/Resolved]
  - Chronic myelomonocytic leukaemia [Not Recovered/Not Resolved]
  - Blood iron decreased [Unknown]

NARRATIVE: CASE EVENT DATE: 2019
